FAERS Safety Report 5191760-3 (Version None)
Quarter: 2006Q4

REPORT INFORMATION
  Report Type: 
  Country: None (occurrence: None)
  Receive Date: 20061219
  Receipt Date: 20061204
  Transmission Date: 20070319
  Serious: Yes (Life-Threatening, Other)
  Sender: FDA-Public Use
  Company Number: DE-2006-034875

PATIENT
  Age: 79 Year
  Sex: Female
  Weight: 71 kg

DRUGS (16)
  1. MAGNEVIST [Suspect]
     Indication: NUCLEAR MAGNETIC RESONANCE IMAGING
     Dosage: 14 ML, 1 DOSE,
     Dates: start: 20061103, end: 20061103
  2. DIGIMERCK MINOR (DIGITOXIN) TABLET [Concomitant]
  3. CALCIUM ACETATE (CALCIUM ACETATE) FILM TABLET [Concomitant]
  4. UNAT (TORASEMIDE) [Concomitant]
  5. VITARENAL TABLET [Concomitant]
  6. INSULIN ACTRAPHAN HUMAN (INSULIN HUMAN INJECTION, ISOPHANE) AMPULE [Concomitant]
  7. INSUMAN COMB (ISOPHANE INSULIN, INSULIN HUMAN) [Concomitant]
  8. SODIUM BICARBONATE IN PLASTIC CONTAINER [Concomitant]
  9. LORZAAR (LOSARTAN POTASSIUM) FILM TABLET [Concomitant]
  10. CARVEDILOL [Concomitant]
  11. LEVOTHYROXINE SODIUM [Concomitant]
  12. NEXIUM [Concomitant]
  13. MARCUMAR [Concomitant]
  14. FERRLECIT /GFR/ (FERRIC SODIUM GLUCONATE COMPLEX) AMPULE [Concomitant]
  15. DEKRISTOL CAPSULE [Concomitant]
  16. ARANESP PREFILLED SYRINGE [Concomitant]

REACTIONS (7)
  - C-REACTIVE PROTEIN INCREASED [None]
  - CHILLS [None]
  - GENERAL PHYSICAL HEALTH DETERIORATION [None]
  - LEUKOCYTOSIS [None]
  - NAUSEA [None]
  - PYREXIA [None]
  - SEPSIS [None]
